FAERS Safety Report 7534363-5 (Version None)
Quarter: 2011Q2

REPORT INFORMATION
  Report Type: 
  Country: None (occurrence: None)
  Receive Date: 20110608
  Receipt Date: 20110520
  Transmission Date: 20111010
  Serious: No
  Sender: FDA-Public Use
  Company Number: US-AMGEN-USASP2011026457

PATIENT
  Age: 80 Year
  Sex: Female

DRUGS (10)
  1. ATENOLOL [Concomitant]
     Dosage: 1 MG, QD
  2. ACIDOPHILUS [Concomitant]
  3. COUMADIN [Concomitant]
     Dosage: 1 MG, QD
  4. PROLIA [Suspect]
     Indication: OSTEOPOROSIS POSTMENOPAUSAL
     Dosage: 60 MG, Q6MO
     Dates: start: 20110115
  5. FUROSEMIDE [Concomitant]
  6. DIOVAN [Concomitant]
     Dosage: 1 MG, QD
  7. POTASSIUM CHLORIDE [Concomitant]
     Dosage: UNK UNK, QD
  8. VITAMIN A [Concomitant]
     Dosage: 1 IU, QD
  9. CALCIUM CARBONATE [Concomitant]
  10. VITAMIN C                          /00008001/ [Concomitant]

REACTIONS (4)
  - BURNING SENSATION [None]
  - MUSCLE SPASMS [None]
  - TENDON DISORDER [None]
  - MUSCLE DISORDER [None]
